FAERS Safety Report 15092446 (Version 1)
Quarter: 2018Q3

REPORT INFORMATION
  Report Type: Spontaneous
  Country: US (occurrence: US)
  Receive Date: 20180629
  Receipt Date: 20180629
  Transmission Date: 20181010
  Serious: No
  Sender: FDA-Public Use
  Company Number: US-TARO-2018TAR00359

PATIENT
  Age: 2 Year
  Sex: Male

DRUGS (2)
  1. TYLENOL [Suspect]
     Active Substance: ACETAMINOPHEN
     Route: 048
  2. IBUPROFEN ORAL SUSPENSION 100 MG/5 ML?RX [Suspect]
     Active Substance: IBUPROFEN
     Route: 048

REACTIONS (1)
  - Vomiting [Unknown]
